FAERS Safety Report 14778680 (Version 3)
Quarter: 2018Q3

REPORT INFORMATION
  Report Type: Spontaneous
  Country: US (occurrence: US)
  Receive Date: 20180419
  Receipt Date: 20180710
  Transmission Date: 20181010
  Serious: No
  Sender: FDA-Public Use
  Company Number: US-BRISTOL-MYERS SQUIBB COMPANY-BMS-2018-036341

PATIENT
  Age: 68 Year
  Sex: Male

DRUGS (2)
  1. SPRYCEL [Suspect]
     Active Substance: DASATINIB
     Indication: CHRONIC MYELOID LEUKAEMIA
     Dosage: 100 MG, QOD
     Route: 048
     Dates: start: 20180206
  2. SPRYCEL [Suspect]
     Active Substance: DASATINIB
     Indication: PRODUCT USED FOR UNKNOWN INDICATION
     Dosage: 70 MG, QD
     Route: 048

REACTIONS (7)
  - Diarrhoea [Unknown]
  - Palpitations [Unknown]
  - Chills [Unknown]
  - Dyspnoea [Unknown]
  - Chest pain [Unknown]
  - Inappropriate schedule of drug administration [Unknown]
  - Fatigue [Unknown]

NARRATIVE: CASE EVENT DATE: 20180207
